FAERS Safety Report 19069705 (Version 1)
Quarter: 2021Q1

REPORT INFORMATION
  Report Type: Spontaneous
  Country: RU (occurrence: RU)
  Receive Date: 20210329
  Receipt Date: 20210329
  Transmission Date: 20210420
  Serious: Yes (Hospitalization, Other)
  Sender: FDA-Public Use
  Company Number: RU-GLAXOSMITHKLINE-RU2021EME066618

PATIENT
  Age: 10 Year
  Sex: Female

DRUGS (5)
  1. LAMOTRIGINE. [Suspect]
     Active Substance: LAMOTRIGINE
     Indication: SEIZURE
     Dosage: 0.3 MG/KG, QD
     Dates: start: 20180704
  2. LEVETIRACETAM. [Suspect]
     Active Substance: LEVETIRACETAM
     Indication: SEIZURE
     Dosage: UNK
  3. VALPROIC ACID. [Suspect]
     Active Substance: VALPROIC ACID
     Indication: SEIZURE
     Dosage: UNK
  4. PARACETAMOL [Suspect]
     Active Substance: ACETAMINOPHEN
     Indication: PYREXIA
     Dosage: UNK, 0.25
     Route: 054
  5. CEFTRIAXONE. [Suspect]
     Active Substance: CEFTRIAXONE
     Indication: PRODUCT USED FOR UNKNOWN INDICATION
     Dosage: UNK

REACTIONS (19)
  - Blister [Unknown]
  - Lip dry [Unknown]
  - Conjunctival hyperaemia [Unknown]
  - Cerebrovascular insufficiency [Unknown]
  - Pain [Unknown]
  - Epidermolysis [Unknown]
  - Drug ineffective [Unknown]
  - Drug hypersensitivity [Unknown]
  - Pyrexia [Unknown]
  - Nikolsky^s sign [Unknown]
  - Urticaria [Unknown]
  - Illness [Unknown]
  - Rash [Unknown]
  - Scab [Unknown]
  - Conjunctivitis [Unknown]
  - Lip ulceration [Unknown]
  - Secretion discharge [Unknown]
  - Toxic epidermal necrolysis [Unknown]
  - Respiratory failure [Unknown]

NARRATIVE: CASE EVENT DATE: 20180704
